FAERS Safety Report 4586550-6 (Version None)
Quarter: 2005Q1

REPORT INFORMATION
  Report Type: 
  Country: None (occurrence: None)
  Receive Date: 20050218
  Receipt Date: 20040311
  Transmission Date: 20050727
  Serious: Yes (Other)
  Sender: FDA-Public Use
  Company Number: US-BRISTOL-MYERS SQUIBB COMPANY-12531554

PATIENT
  Age: 40 Year
  Sex: Female
  Weight: 90 kg

DRUGS (9)
  1. TAXOL [Suspect]
     Indication: OVARIAN CANCER
     Route: 042
     Dates: start: 20040219, end: 20040219
  2. COUMADIN [Concomitant]
  3. PERCOCET [Concomitant]
  4. COMPAZINE [Concomitant]
  5. DECADRON [Concomitant]
     Indication: PREMEDICATION
     Route: 042
     Dates: start: 20040219, end: 20040219
  6. KYTRIL [Concomitant]
     Indication: PREMEDICATION
     Route: 042
     Dates: start: 20040219, end: 20040219
  7. TAGAMET [Concomitant]
     Indication: PREMEDICATION
     Route: 042
     Dates: start: 20040219, end: 20040219
  8. BENADRYL [Concomitant]
     Indication: PREMEDICATION
     Route: 042
     Dates: start: 20040219, end: 20040219
  9. DECADRON [Concomitant]
     Dosage: 7PM AND 3AM BEFORE CHEMO
     Route: 048
     Dates: start: 20040218, end: 20040219

REACTIONS (2)
  - ARTHRALGIA [None]
  - BACK PAIN [None]
